FAERS Safety Report 4757581-8 (Version None)
Quarter: 2005Q3

REPORT INFORMATION
  Report Type: 
  Country: None (occurrence: None)
  Receive Date: 20050830
  Receipt Date: 20050816
  Transmission Date: 20060218
  Serious: Yes (Hospitalization)
  Sender: FDA-Public Use
  Company Number: DSA_26898_2005

PATIENT
  Age: 31 Year
  Sex: Male

DRUGS (2)
  1. LORAZEPAM [Suspect]
     Dosage: 15 TAB ONCE PO
     Route: 048
     Dates: start: 20050815, end: 20050815
  2. UNKNOWN [Suspect]
     Dosage: DF ONCE PO
     Route: 048
     Dates: start: 20050815, end: 20050815

REACTIONS (3)
  - COLD SWEAT [None]
  - INTENTIONAL MISUSE [None]
  - MULTIPLE DRUG OVERDOSE [None]
